FAERS Safety Report 4665436-2 (Version None)
Quarter: 2005Q2

REPORT INFORMATION
  Report Type: 
  Country: None (occurrence: None)
  Receive Date: 20050518
  Receipt Date: 20050518
  Transmission Date: 20051028
  Serious: Yes (Life-Threatening, Hospitalization)
  Sender: FDA-Public Use
  Company Number: None

PATIENT
  Age: 11 Year
  Sex: Male
  Weight: 56.6996 kg

DRUGS (1)
  1. PAXIL [Suspect]
     Indication: ANXIETY
     Dosage: 1-2 TIMES DAY ORAL
     Route: 048
     Dates: start: 19990501, end: 20010810

REACTIONS (3)
  - ABNORMAL BEHAVIOUR [None]
  - AGGRESSION [None]
  - SUICIDE ATTEMPT [None]
